FAERS Safety Report 5346220-3 (Version None)
Quarter: 2007Q2

REPORT INFORMATION
  Report Type: 
  Country: None (occurrence: None)
  Receive Date: 20070605
  Receipt Date: 20070524
  Transmission Date: 20071010
  Serious: Yes (Hospitalization)
  Sender: FDA-Public Use
  Company Number: DE-SANOFI-SYNTHELABO-A01200705529

PATIENT
  Sex: Male
  Weight: 42.7 kg

DRUGS (5)
  1. ALENDRON [Concomitant]
     Indication: DRUG USE FOR UNKNOWN INDICATION
     Route: 065
  2. CALCIMAGON-D3 [Concomitant]
     Indication: OSTEOPOROSIS
     Route: 065
  3. FLUNITRAZEPAM [Concomitant]
     Indication: SLEEP DISORDER
     Route: 065
  4. ISCOVER [Suspect]
     Indication: ANGIOPLASTY
     Route: 048
     Dates: start: 20070430, end: 20070501
  5. ISCOVER [Suspect]
     Indication: STENT PLACEMENT
     Route: 048
     Dates: start: 20070430, end: 20070501

REACTIONS (1)
  - DEHYDRATION [None]
